FAERS Safety Report 12087237 (Version 2)
Quarter: 2017Q1

REPORT INFORMATION
  Report Type: Spontaneous
  Country: US (occurrence: US)
  Receive Date: 20160217
  Receipt Date: 20170218
  Transmission Date: 20170428
  Serious: No
  Sender: FDA-Public Use
  Company Number: US-ALLERGAN-1525612US

PATIENT
  Age: 82 Year
  Sex: Female

DRUGS (1)
  1. RESTASIS [Suspect]
     Active Substance: CYCLOSPORINE
     Indication: DRY EYE
     Dosage: 2 GTT, Q4HR
     Route: 047
     Dates: start: 2015, end: 201512

REACTIONS (7)
  - Vision blurred [Not Recovered/Not Resolved]
  - Visual acuity reduced [Unknown]
  - Foreign body sensation in eyes [Not Recovered/Not Resolved]
  - Inappropriate schedule of drug administration [Unknown]
  - Swelling face [Unknown]
  - Eye irritation [Not Recovered/Not Resolved]
  - Ocular hyperaemia [Not Recovered/Not Resolved]

NARRATIVE: CASE EVENT DATE: 2015
